FAERS Safety Report 19183536 (Version 1)
Quarter: 2021Q2

REPORT INFORMATION
  Report Type: Spontaneous
  Country: US (occurrence: US)
  Receive Date: 20210426
  Receipt Date: 20210426
  Transmission Date: 20210717
  Serious: No
  Sender: FDA-Public Use
  Company Number: None

PATIENT
  Age: 49 Year
  Sex: Female
  Weight: 61.23 kg

DRUGS (2)
  1. COSENTYX [Suspect]
     Active Substance: SECUKINUMAB
     Indication: POLYARTHRITIS
     Route: 058
     Dates: start: 202102
  2. COSENTYX [Suspect]
     Active Substance: SECUKINUMAB
     Indication: POLYARTHRITIS

REACTIONS (1)
  - Foot operation [None]
